FAERS Safety Report 18688103 (Version 1)
Quarter: 2020Q4

REPORT INFORMATION
  Report Type: Spontaneous
  Country: US (occurrence: US)
  Receive Date: 20201230
  Receipt Date: 20201230
  Transmission Date: 20210114
  Serious: Yes (Hospitalization)
  Sender: FDA-Public Use
  Company Number: None

PATIENT
  Age: 53 Year
  Sex: Male
  Weight: 129.37 kg

DRUGS (12)
  1. DILTIAZEM 30MG [Concomitant]
  2. IMATINIB MESYLATE. [Suspect]
     Active Substance: IMATINIB MESYLATE
     Indication: T-CELL LYMPHOMA
     Route: 048
     Dates: start: 20200923
  3. VITAMIN B COMPLEX [Concomitant]
     Active Substance: CYANOCOBALAMIN\DEXPANTHENOL\NIACINAMIDE\PYRIDOXINE HYDROCHLORIDE\RIBOFLAVIN 5^-PHOSPHATE SODIUM\THIAMINE HYDROCHLORIDE\VITAMIN B COMPLEX
  4. DIPHENHYDRAMINE 25MG [Concomitant]
     Active Substance: DIPHENHYDRAMINE
  5. LORAZEPAM 2MG [Concomitant]
     Active Substance: LORAZEPAM
  6. FOLIC ACID 1MG [Concomitant]
     Active Substance: FOLIC ACID
  7. METOPROLOL TARTRATE 100MG [Concomitant]
     Active Substance: METOPROLOL TARTRATE
  8. ACETAMINOPHEN. [Concomitant]
     Active Substance: ACETAMINOPHEN
  9. OXYCODONE 5MG [Concomitant]
     Active Substance: OXYCODONE
  10. IMATINIB MESYLATE. [Suspect]
     Active Substance: IMATINIB MESYLATE
     Indication: CHRONIC MYELOID LEUKAEMIA
     Route: 048
     Dates: start: 20200923
  11. VITAMIN D [Concomitant]
     Active Substance: VITAMIN D NOS
  12. WARFARIN 10MG [Concomitant]

REACTIONS (1)
  - Renal haemorrhage [None]

NARRATIVE: CASE EVENT DATE: 20201230
